FAERS Safety Report 24453716 (Version 2)
Quarter: 2024Q4

REPORT INFORMATION
  Report Type: Report from Study
  Country: US (occurrence: US)
  Receive Date: 20241017
  Receipt Date: 20241018
  Transmission Date: 20250115
  Serious: No
  Sender: ROCHE
  Company Number: US-ROCHE-3300565

PATIENT
  Age: 61 Year
  Sex: Female

DRUGS (2)
  1. RITUXAN [Suspect]
     Active Substance: RITUXIMAB
     Indication: Lichen planus
     Dosage: DAY 1 AND DAY 15, DATE OF SERVICE: 14/FEB/2023, 28/FEB/2023, 24/MAY/2023, 29/AUG/2023, 16/NOV/2023,
     Route: 041
     Dates: start: 20230214
  2. RITUXAN [Suspect]
     Active Substance: RITUXIMAB
     Indication: Lichen planus

REACTIONS (3)
  - Off label use [Unknown]
  - No adverse event [Unknown]
  - Off label use [Unknown]

NARRATIVE: CASE EVENT DATE: 20230214
